FAERS Safety Report 18600682 (Version 12)
Quarter: 2021Q4

REPORT INFORMATION
  Report Type: Report from Study
  Country: PA (occurrence: PA)
  Receive Date: 20201210
  Receipt Date: 20211231
  Transmission Date: 20220303
  Serious: Yes (Life-Threatening, Other)
  Sender: FDA-Public Use
  Company Number: NVSC2020PA296667

PATIENT
  Age: 54 Year
  Sex: Female

DRUGS (1)
  1. GILENYA [Suspect]
     Active Substance: FINGOLIMOD HYDROCHLORIDE
     Indication: Multiple sclerosis
     Dosage: 0.5 MG, QD, VIA MOUTH
     Route: 048
     Dates: start: 20201028

REACTIONS (34)
  - Lymphopenia [Recovered/Resolved]
  - Lymphopenia [Recovered/Resolved]
  - Lymphopenia [Not Recovered/Not Resolved]
  - Blood test abnormal [Unknown]
  - Chills [Recovered/Resolved]
  - Haemoglobin decreased [Not Recovered/Not Resolved]
  - Pyrexia [Recovered/Resolved]
  - Colitis [Recovered/Resolved]
  - Suspected COVID-19 [Unknown]
  - Fatigue [Not Recovered/Not Resolved]
  - Syncope [Unknown]
  - Pain in extremity [Not Recovered/Not Resolved]
  - Nasopharyngitis [Recovered/Resolved]
  - Headache [Unknown]
  - Spinal disorder [Recovered/Resolved]
  - Anxiety [Not Recovered/Not Resolved]
  - Haematocrit increased [Unknown]
  - Chills [Unknown]
  - Pain [Unknown]
  - Discomfort [Unknown]
  - Malaise [Unknown]
  - Gait disturbance [Unknown]
  - Hypoaesthesia [Unknown]
  - Musculoskeletal discomfort [Unknown]
  - Secretion discharge [Unknown]
  - Nasal congestion [Unknown]
  - Productive cough [Unknown]
  - Influenza [Unknown]
  - Blood pressure increased [Unknown]
  - Dizziness [Not Recovered/Not Resolved]
  - Platelet count decreased [Unknown]
  - Cough [Unknown]
  - Limb discomfort [Unknown]
  - Spinal disorder [Unknown]

NARRATIVE: CASE EVENT DATE: 20201029
